FAERS Safety Report 9684531 (Version 1)
Quarter: 2013Q4

REPORT INFORMATION
  Report Type: Report from Study
  Country: US (occurrence: US)
  Receive Date: 20131112
  Receipt Date: 20131112
  Transmission Date: 20140711
  Serious: Yes (Other)
  Sender: FDA-Public Use
  Company Number: PHHY2013US126396

PATIENT
  Sex: Female

DRUGS (15)
  1. XOLAIR [Suspect]
     Dosage: UNK UKN, UNK
  2. CLONAZEPAM [Suspect]
     Dosage: 0.5 MG, BID, EVERY 12 HOURS
  3. GAMUNEX [Concomitant]
     Dosage: 10 G, WEEKLY OR 100 ML 1 IN 1 WK
     Route: 058
  4. LIDOCAINE AND PRILOCAINE [Concomitant]
     Dosage: UNK UKN, UNK
     Route: 061
  5. PROZAC [Concomitant]
     Dosage: 20 MG, QD
  6. PROAIR (FLUTICASONE PROPIONATE) [Concomitant]
     Dosage: 2 DF,EVERY 4 HOURS
  7. ZYRTEC [Concomitant]
     Dosage: 10 MG, (1 IN 1D)
  8. BUDESONIDE [Concomitant]
     Dosage: 3 MG, (HALF CAPSULE IN EACH NARES TWICE DAILY)
     Route: 045
  9. ADVAIR DISKUS [Concomitant]
     Dosage: 1 PUFF IN 12 HOUR
  10. NEXUM [Concomitant]
     Dosage: 40 MG, QD
     Route: 048
  11. MORTIN [Concomitant]
     Dosage: 200 MG,(AS NEEDED)
     Route: 048
  12. ALBUTEROL SULFATE [Concomitant]
     Indication: DYSPNOEA
     Dosage: 2 TO 4 PUFFS EVERY 4 HRS AS NEEDED
  13. ALBUTEROL SULFATE [Concomitant]
     Dosage: 2.5 MG/3ML IN EVERY4 HOURS
  14. TYLENOL//PARACETAMOL [Concomitant]
     Indication: HYPERSENSITIVITY
     Dosage: UNK UKN, UNK
  15. NORETHINDRONE//NORETHISTERONE [Concomitant]
     Dosage: 1 TABLET FOR 28 DAYS
     Route: 048

REACTIONS (15)
  - Abortion spontaneous [Unknown]
  - Wheezing [Unknown]
  - Productive cough [Unknown]
  - Pain [Unknown]
  - Pain in extremity [Unknown]
  - Bone loss [Unknown]
  - Upper-airway cough syndrome [Unknown]
  - Sinusitis [Unknown]
  - Rhinitis allergic [Unknown]
  - White blood cell disorder [Unknown]
  - Red cell distribution width abnormal [Unknown]
  - Upper respiratory tract infection [Unknown]
  - Restlessness [Unknown]
  - Poor quality sleep [Unknown]
  - Maternal exposure during pregnancy [Unknown]
